FAERS Safety Report 10037167 (Version 1)
Quarter: 2014Q1

REPORT INFORMATION
  Report Type: Spontaneous
  Country: IT (occurrence: IT)
  Receive Date: 20140326
  Receipt Date: 20140326
  Transmission Date: 20141002
  Serious: Yes (Other)
  Sender: FDA-Public Use
  Company Number: IT-SUN PHARMACEUTICAL INDUSTRIES LTD-2014SUN00626

PATIENT
  Age: 15 Year
  Sex: Male

DRUGS (4)
  1. BACLOFEN [Suspect]
     Indication: MUSCLE SPASTICITY
     Dosage: 950 MCG/DAY
     Route: 037
     Dates: start: 2006
  2. BACLOFEN [Interacting]
     Indication: DYSTONIA
  3. ZICONOTIDE [Interacting]
     Indication: MYALGIA
     Dosage: 0.5 MCG/DAY
     Route: 037
  4. ZICONOTIDE [Interacting]
     Indication: MUSCULOSKELETAL DEFORMITY

REACTIONS (3)
  - Drug interaction [Recovered/Resolved]
  - Dyskinesia [Recovered/Resolved]
  - Drug ineffective [Unknown]
